FAERS Safety Report 8022952-3 (Version None)
Quarter: 2011Q4

REPORT INFORMATION
  Report Type: 
  Country: None (occurrence: None)
  Receive Date: 20111230
  Receipt Date: 20111220
  Transmission Date: 20120403
  Serious: Yes (Other)
  Sender: FDA-Public Use
  Company Number: US-2011-10765

PATIENT
  Age: 43 Year
  Sex: Female

DRUGS (2)
  1. TERBINAFINE HCL [Concomitant]
  2. SAMSCA [Suspect]
     Indication: CONGENITAL CYSTIC KIDNEY DISEASE
     Dosage: 120 MG, DAILY DOSE, ORAL
     Route: 048
     Dates: start: 20110608, end: 20111014

REACTIONS (2)
  - ALANINE AMINOTRANSFERASE INCREASED [None]
  - ASPARTATE AMINOTRANSFERASE INCREASED [None]
